FAERS Safety Report 15672391 (Version 15)
Quarter: 2021Q2

REPORT INFORMATION
  Report Type: Report from Study
  Country: US (occurrence: US)
  Receive Date: 20181129
  Receipt Date: 20210512
  Transmission Date: 20210716
  Serious: Yes (Other)
  Sender: FDA-Public Use
  Company Number: US-TESARO-US-2018TSO01889

PATIENT
  Sex: Female
  Weight: 50 kg

DRUGS (17)
  1. NIRAPARIB [Suspect]
     Active Substance: NIRAPARIB
     Dosage: 200 MG, QD
     Route: 048
  2. NIRAPARIB [Suspect]
     Active Substance: NIRAPARIB
     Dosage: 200 MG, QD
     Route: 048
     Dates: start: 20180425, end: 201805
  3. NIRAPARIB [Suspect]
     Active Substance: NIRAPARIB
     Dosage: 200 MG, QD, PM WITH SNACK
     Route: 048
     Dates: start: 20190126
  4. NIRAPARIB [Suspect]
     Active Substance: NIRAPARIB
     Dosage: 200 MG, QD
     Route: 048
  5. NIRAPARIB [Suspect]
     Active Substance: NIRAPARIB
     Dosage: 200 MG, QD
  6. LATANOPROST. [Suspect]
     Active Substance: LATANOPROST
     Indication: PRODUCT USED FOR UNKNOWN INDICATION
     Dosage: UNK
  7. NIRAPARIB [Suspect]
     Active Substance: NIRAPARIB
     Dosage: 200 MG, QD
     Route: 048
     Dates: start: 201805, end: 20181004
  8. NIRAPARIB [Suspect]
     Active Substance: NIRAPARIB
     Dosage: 200 MG, QD
     Route: 048
     Dates: start: 20181129, end: 20181231
  9. NIRAPARIB [Suspect]
     Active Substance: NIRAPARIB
     Dosage: 200 MG, QD
  10. NIRAPARIB [Suspect]
     Active Substance: NIRAPARIB
     Dosage: 200 MG, QD
     Route: 048
     Dates: end: 20210423
  11. NIRAPARIB [Suspect]
     Active Substance: NIRAPARIB
     Indication: OVARIAN CANCER
     Dosage: 300 MG, QD
     Route: 048
     Dates: start: 20180404, end: 20180414
  12. NIRAPARIB [Suspect]
     Active Substance: NIRAPARIB
     Dosage: 300 MG, QD
  13. NIRAPARIB [Suspect]
     Active Substance: NIRAPARIB
     Dosage: 200 MG, QD
  14. NIRAPARIB [Suspect]
     Active Substance: NIRAPARIB
     Dosage: 200 MG, QD
  15. NIRAPARIB [Suspect]
     Active Substance: NIRAPARIB
     Dosage: 200 MG, QD
     Dates: start: 201805
  16. NIRAPARIB [Suspect]
     Active Substance: NIRAPARIB
     Dosage: 200 MG, QD, PM WITH SNACK
     Route: 048
     Dates: start: 20190126
  17. ROCKLATAN [Concomitant]
     Active Substance: LATANOPROST\NETARSUDIL MESYLATE
     Indication: PRODUCT USED FOR UNKNOWN INDICATION
     Dosage: UNK

REACTIONS (51)
  - Blood creatinine decreased [Recovered/Resolved]
  - Bone pain [Not Recovered/Not Resolved]
  - Anxiety [Recovered/Resolved]
  - Nausea [Recovered/Resolved]
  - Palpitations [Recovering/Resolving]
  - Hernia [Not Recovered/Not Resolved]
  - Blood glucose increased [Unknown]
  - Fatigue [Not Recovered/Not Resolved]
  - Thrombocytopenia [Recovered/Resolved]
  - Ageusia [Recovered/Resolved]
  - Hypertension [Recovered/Resolved]
  - Rash [Unknown]
  - Abdominal distension [Unknown]
  - Stress [Unknown]
  - Tooth infection [Not Recovered/Not Resolved]
  - Blood creatinine increased [Not Recovered/Not Resolved]
  - Blood pressure fluctuation [Recovered/Resolved]
  - Glaucoma [Unknown]
  - Micturition disorder [Recovered/Resolved]
  - Emotional distress [Unknown]
  - Hot flush [Not Recovered/Not Resolved]
  - Constipation [Recovered/Resolved]
  - Abdominal hernia [Unknown]
  - Blood urea increased [Recovering/Resolving]
  - Haemoglobin decreased [Recovering/Resolving]
  - Pruritus [Recovered/Resolved]
  - Insomnia [Recovered/Resolved]
  - Asthenia [Not Recovered/Not Resolved]
  - Urinary tract infection [Unknown]
  - Decreased appetite [Not Recovered/Not Resolved]
  - Cystitis [Recovered/Resolved]
  - Glomerular filtration rate decreased [Not Recovered/Not Resolved]
  - Visual impairment [Unknown]
  - Red blood cell count decreased [Recovering/Resolving]
  - Neuropathy peripheral [Not Recovered/Not Resolved]
  - Blindness unilateral [Unknown]
  - Arthralgia [Not Recovered/Not Resolved]
  - Memory impairment [Not Recovered/Not Resolved]
  - Pain [Unknown]
  - Intraocular pressure increased [Unknown]
  - Carbohydrate antigen 125 increased [Recovering/Resolving]
  - Dizziness postural [Unknown]
  - Retching [Unknown]
  - Weight decreased [Recovered/Resolved]
  - Haematocrit decreased [Recovering/Resolving]
  - Musculoskeletal discomfort [Unknown]
  - Headache [Recovered/Resolved]
  - Anaemia [Not Recovered/Not Resolved]
  - Osteoporosis [Not Recovered/Not Resolved]
  - Nodule [Unknown]
  - Hernia pain [Not Recovered/Not Resolved]
